FAERS Safety Report 9251690 (Version 1)
Quarter: 2013Q1

REPORT INFORMATION
  Report Type: Spontaneous
  Country: US (occurrence: None)
  Receive Date: 20130305
  Receipt Date: 20130305
  Transmission Date: 20140127
  Serious: Yes (Other)
  Sender: FDA-Public Use
  Company Number: 163-21880-12040806

PATIENT
  Age: 85 Year
  Sex: Male

DRUGS (4)
  1. REVLIMID [Suspect]
     Indication: LYMPHATIC DISORDER
     Dosage: 10 MG, DAILY X 21 DAYS THEN 7 DAYS OFF, PO
     Route: 048
     Dates: start: 20100806
  2. FENTANYL(FENTANYL)(UNKNOWN) [Concomitant]
  3. OXYCONTIN(OXYCODONE HYDROCHLORIDE)(UNKNOWN) [Concomitant]
  4. AVELOX [Suspect]
     Indication: PNEUMONIA
     Dates: start: 201203

REACTIONS (2)
  - Drug hypersensitivity [None]
  - Pneumonia [None]
